FAERS Safety Report 9925791 (Version 2)
Quarter: 2014Q1

REPORT INFORMATION
  Report Type: Spontaneous
  Country: JP (occurrence: JP)
  Receive Date: 20140226
  Receipt Date: 20140310
  Transmission Date: 20141002
  Serious: Yes (Hospitalization)
  Sender: FDA-Public Use
  Company Number: JP-BAXTER-2014BAX009025

PATIENT
  Sex: Female
  Weight: 71.6 kg

DRUGS (1)
  1. DIANEAL-N PD-4 1.5 [Suspect]
     Indication: RENAL FAILURE CHRONIC
     Route: 033
     Dates: start: 20110131

REACTIONS (1)
  - Haemolytic anaemia [Not Recovered/Not Resolved]
